FAERS Safety Report 12883331 (Version 1)
Quarter: 2016Q4

REPORT INFORMATION
  Report Type: Spontaneous
  Country: US (occurrence: US)
  Receive Date: 20161025
  Receipt Date: 20161025
  Transmission Date: 20170207
  Serious: No
  Sender: FDA-Public Use
  Company Number: GXBR2016US000719

PATIENT
  Sex: Female
  Weight: 58.96 kg

DRUGS (2)
  1. BUMETANIDE TABLETS, USP [Suspect]
     Active Substance: BUMETANIDE
     Indication: FLUID RETENTION
     Dosage: 1 DF, QD PRN
     Route: 065
     Dates: start: 201511
  2. NORCO [Concomitant]
     Active Substance: ACETAMINOPHEN\HYDROCODONE BITARTRATE
     Indication: PAIN
     Dosage: 10 / 325 MG, BID
     Route: 048

REACTIONS (1)
  - Drug ineffective [Not Recovered/Not Resolved]
